FAERS Safety Report 26128712 (Version 1)
Quarter: 2025Q4

REPORT INFORMATION
  Report Type: Report from Study
  Country: US (occurrence: US)
  Receive Date: 20251208
  Receipt Date: 20251208
  Transmission Date: 20260119
  Serious: Yes (Other)
  Sender: ABBVIE
  Company Number: US-ABBVIE-6578796

PATIENT
  Age: 63 Year
  Sex: Male

DRUGS (2)
  1. DUOPA [Suspect]
     Active Substance: CARBIDOPA\LEVODOPA
     Indication: Product used for unknown indication
     Route: 050
     Dates: start: 20191114
  2. DUOPA [Suspect]
     Active Substance: CARBIDOPA\LEVODOPA

REACTIONS (5)
  - Toe amputation [Unknown]
  - Diabetes mellitus [Unknown]
  - Skin infection [Unknown]
  - Osteomyelitis [Unknown]
  - Foot amputation [Unknown]

NARRATIVE: CASE EVENT DATE: 20251204
